FAERS Safety Report 9462328 (Version 1)
Quarter: 2013Q3

REPORT INFORMATION
  Report Type: Spontaneous
  Country: SI (occurrence: SI)
  Receive Date: 20130816
  Receipt Date: 20130816
  Transmission Date: 20140515
  Serious: Yes (Other)
  Sender: FDA-Public Use
  Company Number: SI-ABBOTT-13P-261-1131627-00

PATIENT
  Age: 69 Year
  Sex: Male
  Weight: 78 kg

DRUGS (2)
  1. HUMIRA [Suspect]
     Indication: PSORIASIS
     Route: 058
     Dates: start: 20100312
  2. PRENESSA [Concomitant]
     Indication: HYPERTENSION
     Route: 048

REACTIONS (1)
  - Keratoacanthoma [Recovered/Resolved]
